FAERS Safety Report 25686715 (Version 1)
Quarter: 2025Q3

REPORT INFORMATION
  Report Type: Spontaneous
  Country: GB (occurrence: GB)
  Receive Date: 20250816
  Receipt Date: 20250816
  Transmission Date: 20251021
  Serious: Yes (Other)
  Sender: AUROBINDO
  Company Number: GB-MHRA-MED-202508031215335850-FPWSK

PATIENT
  Age: 48 Year
  Sex: Male
  Weight: 80 kg

DRUGS (1)
  1. CIPROFLOXACIN [Suspect]
     Active Substance: CIPROFLOXACIN
     Indication: Prostatitis
     Dosage: 500 MILLIGRAM, FOUR TIMES/DAY
     Route: 065
     Dates: start: 20250310, end: 20250315

REACTIONS (6)
  - Tendon disorder [Not Recovered/Not Resolved]
  - Myalgia [Not Recovered/Not Resolved]
  - Muscle rupture [Not Recovered/Not Resolved]
  - Fatigue [Recovering/Resolving]
  - Depression suicidal [Recovered/Resolved]
  - Medication error [Unknown]

NARRATIVE: CASE EVENT DATE: 20250315
